FAERS Safety Report 14222199 (Version 2)
Quarter: 2018Q1

REPORT INFORMATION
  Report Type: Spontaneous
  Country: GT (occurrence: GT)
  Receive Date: 20171124
  Receipt Date: 20180226
  Transmission Date: 20180508
  Serious: Yes (Other)
  Sender: FDA-Public Use
  Company Number: GT-MERCK KGAA-2034998

PATIENT
  Age: 50 Year
  Sex: Female
  Weight: 102 kg

DRUGS (5)
  1. NOVOTHYROX [Suspect]
     Active Substance: LEVOTHYROXINE SODIUM
     Indication: HYPOTHYROIDISM
  2. NOVOTHYROX [Suspect]
     Active Substance: LEVOTHYROXINE SODIUM
  3. NOVOTHYROX [Suspect]
     Active Substance: LEVOTHYROXINE SODIUM
  4. NOVOTHYROX [Suspect]
     Active Substance: LEVOTHYROXINE SODIUM
  5. NOVOTHYROX [Suspect]
     Active Substance: LEVOTHYROXINE SODIUM

REACTIONS (13)
  - Weight loss poor [Not Recovered/Not Resolved]
  - Hypothyroidism [Recovered/Resolved]
  - Anxiety [Recovering/Resolving]
  - Feeling cold [Recovering/Resolving]
  - Nervousness [Recovered/Resolved]
  - Arthralgia [Recovered/Resolved]
  - Hyperthyroidism [Recovered/Resolved]
  - Pain [Recovered/Resolved]
  - Tachycardia [Recovering/Resolving]
  - Dyspnoea exertional [Recovering/Resolving]
  - Fatigue [Recovered/Resolved]
  - Chills [Recovering/Resolving]
  - Inflammation [Not Recovered/Not Resolved]
